FAERS Safety Report 7914747-3 (Version None)
Quarter: 2011Q4

REPORT INFORMATION
  Report Type: 
  Country: None (occurrence: None)
  Receive Date: 20111115
  Receipt Date: 20111111
  Transmission Date: 20120403
  Serious: Yes (Life-Threatening, Other)
  Sender: FDA-Public Use
  Company Number: PHHY2011JP72850

PATIENT
  Sex: Female
  Weight: 45 kg

DRUGS (7)
  1. ADALAT [Concomitant]
     Indication: HYPERTENSION
     Dosage: 2 DF,
     Route: 048
     Dates: start: 20100322
  2. RASILEZ [Suspect]
     Indication: HYPERTENSION
     Dosage: 150 MG,
     Route: 048
     Dates: start: 20110520, end: 20110521
  3. NORVASC [Concomitant]
     Indication: HYPERTENSION
     Dosage: 2 DF,
     Route: 048
     Dates: start: 20100322
  4. BISOPROLOL FUMARATE [Concomitant]
     Indication: HYPERTENSION
     Dosage: 1 DF,
     Route: 048
     Dates: start: 20100322
  5. PRAVASTATIN SODIUM [Concomitant]
     Indication: DYSLIPIDAEMIA
     Dosage: 1 DF, UNK
     Route: 048
     Dates: start: 20101231
  6. MICARDIS [Concomitant]
     Indication: HYPERTENSION
     Dosage: 1 DF, UNK
     Route: 048
     Dates: start: 20100730
  7. LORELCO [Concomitant]
     Indication: DYSLIPIDAEMIA
     Dosage: 2 DF, UNK
     Route: 048
     Dates: start: 20100322

REACTIONS (5)
  - FLUSHING [None]
  - GENERALISED OEDEMA [None]
  - GENERALISED ERYTHEMA [None]
  - VASCULAR OCCLUSION [None]
  - DYSPNOEA [None]
